FAERS Safety Report 7318610-0 (Version None)
Quarter: 2011Q1

REPORT INFORMATION
  Report Type: 
  Country: None (occurrence: None)
  Receive Date: 20110228
  Receipt Date: 20110215
  Transmission Date: 20110831
  Serious: Yes (Life-Threatening, Hospitalization)
  Sender: FDA-Public Use
  Company Number: JP-AMGEN-JPNSP2011009053

PATIENT
  Age: 59 Year
  Sex: Male
  Weight: 69 kg

DRUGS (13)
  1. ENBREL [Suspect]
     Indication: PSORIASIS
     Dosage: 25 MG, WEEKLY
     Route: 058
     Dates: start: 20090313
  2. ACTONEL [Concomitant]
     Indication: OSTEOPOROSIS
     Dosage: 17.5 MG, WEEKLY
     Route: 048
  3. TAKEPRON [Concomitant]
     Dosage: 60 MG, 1X/DAY
     Route: 048
  4. ALLEGRA                            /01314202/ [Concomitant]
     Indication: HYPERSENSITIVITY
     Dosage: 60 MG, 2X/DAY
     Route: 048
  5. ENBREL [Suspect]
     Indication: RHEUMATOID ARTHRITIS
     Dosage: 25 MG, 2X/WEEK
     Route: 058
     Dates: start: 20090227
  6. MUCODYNE [Concomitant]
     Dosage: 500 MG, 3X/DAY
     Route: 048
  7. ENBREL [Suspect]
     Dosage: 25 MG, WEEKLY
     Route: 058
     Dates: end: 20110107
  8. MUCOSOLVAN                         /00546001/ [Concomitant]
     Dosage: 15 MG, 3X/DAY
     Route: 048
  9. VOLTAREN [Concomitant]
     Dosage: UNK MG, SINGLE
     Route: 054
  10. ENBREL [Suspect]
     Dosage: 25 MG, QD
     Dates: end: 20110114
  11. PREDNISOLONE [Concomitant]
     Dosage: 5 MG, QD
  12. ENBREL [Suspect]
     Dosage: 25 MG, WEEKLY
     Route: 058
     Dates: start: 20100324
  13. POLARAMINE                         /00043702/ [Concomitant]
     Indication: HYPERSENSITIVITY
     Dosage: 2 MG, 2X/DAY
     Route: 048

REACTIONS (2)
  - OSTEONECROSIS [None]
  - INTERSTITIAL LUNG DISEASE [None]
